FAERS Safety Report 5342692-9 (Version None)
Quarter: 2007Q2

REPORT INFORMATION
  Report Type: 
  Country: None (occurrence: None)
  Receive Date: 20070601
  Receipt Date: 20070105
  Transmission Date: 20071010
  Serious: No
  Sender: FDA-Public Use
  Company Number: A0634477A

PATIENT
  Age: 61 Year
  Sex: Female

DRUGS (1)
  1. AUGMENTIN XR [Suspect]
     Indication: ACUTE SINUSITIS
     Dosage: 2000MG TWICE PER DAY
     Route: 048
     Dates: start: 20060901, end: 20061201

REACTIONS (1)
  - DRUG INEFFECTIVE [None]
